FAERS Safety Report 11058057 (Version 1)
Quarter: 2015Q2

REPORT INFORMATION
  Report Type: Spontaneous
  Country: US (occurrence: None)
  Receive Date: 20150421
  Receipt Date: 20150421
  Transmission Date: 20150821
  Serious: Yes (Other)
  Sender: FDA-Public Use
  Company Number: 2014SA027998

PATIENT
  Age: 89 Year
  Sex: Female
  Weight: 57 kg

DRUGS (3)
  1. ALLEGRA [Suspect]
     Active Substance: FEXOFENADINE HYDROCHLORIDE
     Indication: PERENNIAL ALLERGY
     Route: 048
     Dates: start: 20140227
  2. MIRALAX [Suspect]
     Active Substance: POLYETHYLENE GLYCOL 3350
     Indication: PRODUCT USED FOR UNKNOWN INDICATION
  3. NASAL [Concomitant]
     Active Substance: OXYMETAZOLINE HYDROCHLORIDE

REACTIONS (6)
  - Nightmare [None]
  - Incontinence [None]
  - Wrong technique in drug usage process [None]
  - Drug ineffective [None]
  - Choking [None]
  - Somnolence [None]
